FAERS Safety Report 4348003-X (Version None)
Quarter: 2004Q2

REPORT INFORMATION
  Report Type: 
  Country: None (occurrence: None)
  Receive Date: 20040422
  Receipt Date: 20040413
  Transmission Date: 20050107
  Serious: Yes (Disabling)
  Sender: FDA-Public Use
  Company Number: 2004209281GB

PATIENT
  Age: 56 Year
  Sex: Female

DRUGS (2)
  1. CELEBREX [Suspect]
     Indication: ARTHRALGIA
     Dosage: 100 MG , QD, ORAL
     Route: 048
     Dates: start: 20040203, end: 20040222
  2. QUININE [Concomitant]

REACTIONS (1)
  - FEELING COLD [None]
